FAERS Safety Report 18955698 (Version 1)
Quarter: 2021Q1

REPORT INFORMATION
  Report Type: Spontaneous
  Country: FR (occurrence: FR)
  Receive Date: 20210301
  Receipt Date: 20210301
  Transmission Date: 20210420
  Serious: Yes (Other)
  Sender: FDA-Public Use
  Company Number: FR-PFIZER INC-2021180922

PATIENT
  Age: 68 Year
  Sex: Male

DRUGS (2)
  1. TAVANIC [Suspect]
     Active Substance: LEVOFLOXACIN
     Indication: INFECTION
     Dosage: 1500 MG
     Route: 048
     Dates: start: 20210119, end: 20210121
  2. DALACINE [Suspect]
     Active Substance: CLINDAMYCIN
     Indication: INFECTION
     Dosage: 2700 MG
     Route: 048
     Dates: start: 20210119, end: 20210121

REACTIONS (5)
  - Acute kidney injury [Recovered/Resolved]
  - Product use issue [Unknown]
  - Oesophageal pain [Recovered/Resolved]
  - Off label use [Unknown]
  - Vomiting [Recovered/Resolved]

NARRATIVE: CASE EVENT DATE: 20210119
